FAERS Safety Report 23924720 (Version 1)
Quarter: 2024Q2

REPORT INFORMATION
  Report Type: Other
  Country: CA (occurrence: CA)
  Receive Date: 20240531
  Receipt Date: 20240531
  Transmission Date: 20240716
  Serious: Yes (Death)
  Sender: FDA-Public Use
  Company Number: CA-Spectra Medical Devices, LLC-2157632

PATIENT
  Age: 55 Year
  Sex: Female

DRUGS (15)
  1. LIDOCAINE HYDROCHLORIDE [Suspect]
     Active Substance: LIDOCAINE HYDROCHLORIDE
     Indication: Product used for unknown indication
     Route: 065
  2. DEPROPIONYLFENTANYL [Suspect]
     Active Substance: DEPROPIONYLFENTANYL
     Route: 065
  3. Bromazolam [Concomitant]
     Route: 065
  4. CARFENTANIL [Suspect]
     Active Substance: CARFENTANIL
     Route: 065
  5. ETIZOLAM [Suspect]
     Active Substance: ETIZOLAM
     Route: 065
  6. NORFENTANYL [Suspect]
     Active Substance: NORFENTANYL
     Route: 065
  7. FENTANYL [Suspect]
     Active Substance: FENTANYL\FENTANYL CITRATE
     Route: 065
  8. METHAMPHETAMINE HYDROCHLORIDE [Suspect]
     Active Substance: METHAMPHETAMINE HYDROCHLORIDE
     Route: 065
  9. CYCLOBENZAPRINE [Suspect]
     Active Substance: CYCLOBENZAPRINE
     Route: 065
  10. 2-ETHYLIDENE-1,5-DIMETHYL-3,3-DIPHENYLPYRROLIDINE [Suspect]
     Active Substance: 2-ETHYLIDENE-1,5-DIMETHYL-3,3-DIPHENYLPYRROLIDINE
     Route: 065
  11. METHADONE [Suspect]
     Active Substance: METHADONE HYDROCHLORIDE
     Route: 065
  12. NICOTINE [Suspect]
     Active Substance: NICOTINE
     Route: 065
  13. NALOXONE HCL [Suspect]
     Active Substance: NALOXONE HYDROCHLORIDE
     Route: 065
  14. COTININE [Suspect]
     Active Substance: COTININE
     Route: 065
  15. CAFFEINE [Suspect]
     Active Substance: CAFFEINE
     Route: 065

REACTIONS (1)
  - Toxicity to various agents [Fatal]
